FAERS Safety Report 7016912-9 (Version None)
Quarter: 2010Q3

REPORT INFORMATION
  Report Type: 
  Country: None (occurrence: None)
  Receive Date: 20100927
  Receipt Date: 20100920
  Transmission Date: 20110219
  Serious: Yes (Hospitalization)
  Sender: FDA-Public Use
  Company Number: US-AMGEN-KDL440053

PATIENT

DRUGS (1)
  1. ENBREL [Suspect]
     Route: 064
     Dates: start: 20071010

REACTIONS (1)
  - FOETAL MACROSOMIA [None]
